FAERS Safety Report 15133634 (Version 1)
Quarter: 2018Q3

REPORT INFORMATION
  Report Type: Spontaneous
  Country: FR (occurrence: FR)
  Receive Date: 20180712
  Receipt Date: 20180712
  Transmission Date: 20181010
  Serious: Yes (Hospitalization)
  Sender: FDA-Public Use
  Company Number: FR-KRKA, D.D., NOVO MESTO-2051850

PATIENT
  Age: 58 Year
  Sex: Male
  Weight: 69 kg

DRUGS (7)
  1. AVODART [Suspect]
     Active Substance: DUTASTERIDE
     Route: 048
  2. KEPPRA [Suspect]
     Active Substance: LEVETIRACETAM
     Route: 048
  3. NOXAFIL [Suspect]
     Active Substance: POSACONAZOLE
     Route: 048
  4. LANSOPRAZOLE. [Suspect]
     Active Substance: LANSOPRAZOLE
     Indication: PRODUCT USED FOR UNKNOWN INDICATION
     Route: 048
  5. REPAGLINIDE. [Suspect]
     Active Substance: REPAGLINIDE
     Route: 048
  6. KALEORID  LP [Suspect]
     Active Substance: POTASSIUM CHLORIDE
     Route: 048
  7. ANCOTIL [Suspect]
     Active Substance: FLUCYTOSINE
     Route: 048

REACTIONS (3)
  - Left ventricular dysfunction [Not Recovered/Not Resolved]
  - Cardiac failure [Recovering/Resolving]
  - Ischaemic cardiomyopathy [Not Recovered/Not Resolved]

NARRATIVE: CASE EVENT DATE: 20180524
